FAERS Safety Report 8229524-6 (Version None)
Quarter: 2012Q1

REPORT INFORMATION
  Report Type: 
  Country: None (occurrence: None)
  Receive Date: 20120322
  Receipt Date: 20120306
  Transmission Date: 20120608
  Serious: Yes (Hospitalization)
  Sender: FDA-Public Use
  Company Number: CHPA2012US004609

PATIENT
  Age: 67 Year
  Sex: Female

DRUGS (1)
  1. GAS-X PREVENTION [Suspect]
     Indication: FLATULENCE
     Dosage: 1 DF, UNK
     Route: 048
     Dates: end: 20120107

REACTIONS (2)
  - OFF LABEL USE [None]
  - ABDOMINAL PAIN [None]
